FAERS Safety Report 8255828-7 (Version None)
Quarter: 2012Q2

REPORT INFORMATION
  Report Type: 
  Country: None (occurrence: None)
  Receive Date: 20120403
  Receipt Date: 20120319
  Transmission Date: 20120825
  Serious: Yes (Other)
  Sender: FDA-Public Use
  Company Number: AU-ROCHE-1031825

PATIENT

DRUGS (1)
  1. ALTEPLASE [Suspect]
     Indication: ISCHAEMIC STROKE
     Dosage: 0.9 MG/KG UP TO 90 MG
     Route: 042

REACTIONS (5)
  - GASTROINTESTINAL DISORDER [None]
  - NEUROLOGICAL DECOMPENSATION [None]
  - RESPIRATORY DISORDER [None]
  - INFECTION [None]
  - RENAL DISORDER [None]
